FAERS Safety Report 13377740 (Version 1)
Quarter: 2017Q1

REPORT INFORMATION
  Report Type: Spontaneous
  Country: US (occurrence: US)
  Receive Date: 20170328
  Receipt Date: 20170328
  Transmission Date: 20170429
  Serious: No
  Sender: FDA-Public Use
  Company Number: US-009507513-1703USA010661

PATIENT
  Sex: Female

DRUGS (1)
  1. BELSOMRA [Suspect]
     Active Substance: SUVOREXANT
     Indication: SLEEP DISORDER
     Dosage: UNK
     Route: 048
     Dates: end: 201703

REACTIONS (7)
  - Insomnia [Recovered/Resolved]
  - Tremor [Recovered/Resolved]
  - Abnormal dreams [Recovered/Resolved]
  - Hyperhidrosis [Recovered/Resolved]
  - Thinking abnormal [Recovered/Resolved]
  - Headache [Not Recovered/Not Resolved]
  - Depressed mood [Recovered/Resolved]

NARRATIVE: CASE EVENT DATE: 201703
